FAERS Safety Report 8352099-8 (Version None)
Quarter: 2012Q2

REPORT INFORMATION
  Report Type: 
  Country: None (occurrence: None)
  Receive Date: 20120509
  Receipt Date: 20120425
  Transmission Date: 20120825
  Serious: Yes (Death, Other)
  Sender: FDA-Public Use
  Company Number: EU-2012-10135

PATIENT
  Age: 57 Year
  Sex: Male

DRUGS (3)
  1. SAMSCA [Suspect]
     Indication: OFF LABEL USE
     Dosage: 30 MG MILLIGRAM(S), DAILY DOSE, ORAL
     Route: 048
     Dates: start: 20100601, end: 20110901
  2. SAMSCA [Suspect]
     Indication: HEPATIC CIRRHOSIS
     Dosage: 30 MG MILLIGRAM(S), DAILY DOSE, ORAL
     Route: 048
     Dates: start: 20100601, end: 20110901
  3. ANGIOENSIN II ANATGONITIS [Concomitant]

REACTIONS (4)
  - LOSS OF CONSCIOUSNESS [None]
  - OFF LABEL USE [None]
  - SUBDURAL HAEMATOMA [None]
  - FALL [None]
